FAERS Safety Report 8732823 (Version 2)
Quarter: 2012Q4

REPORT INFORMATION
  Report Type: 
  Country: PH (occurrence: PH)
  Receive Date: 20120820
  Receipt Date: 20120914
  Transmission Date: 20130627
  Serious: Yes (Death, Other)
  Sender: FDA-Public Use
  Company Number: PHHY2012PH071099

PATIENT
  Age: 20 Year
  Sex: Male

DRUGS (1)
  1. GLIVEC [Suspect]
     Indication: CHRONIC MYELOID LEUKAEMIA
     Dosage: 300 mg, UNK
     Route: 048
     Dates: start: 20091230

REACTIONS (7)
  - Death [Fatal]
  - Chronic lymphocytic leukaemia transformation [Unknown]
  - Cardiac arrest [Unknown]
  - Renal impairment [Unknown]
  - Pneumonia [Unknown]
  - Pulmonary oedema [Unknown]
  - Drug ineffective [Unknown]
